FAERS Safety Report 6138465-X (Version None)
Quarter: 2009Q1

REPORT INFORMATION
  Report Type: 
  Country: None (occurrence: None)
  Receive Date: 20090331
  Receipt Date: 20090320
  Transmission Date: 20090719
  Serious: Yes (Other)
  Sender: FDA-Public Use
  Company Number: DE-BRISTOL-MYERS SQUIBB COMPANY-14564702

PATIENT
  Age: 67 Year
  Sex: Male

DRUGS (6)
  1. ERBITUX [Suspect]
     Indication: RECTOSIGMOID CANCER
     Dosage: HAD RECEIVED 17 INFUSIONS SO FAR
     Route: 042
     Dates: start: 20080728
  2. IRINOTECAN HCL [Suspect]
     Indication: RECTOSIGMOID CANCER
     Route: 042
     Dates: start: 20080728, end: 20090113
  3. KEVATRIL [Concomitant]
     Dosage: 3MG IN 100ML OF NACL
     Dates: start: 20080728, end: 20090113
  4. CLEMASTINE FUMARATE [Concomitant]
     Route: 042
     Dates: start: 20080728, end: 20090113
  5. PARACETAMOL [Concomitant]
     Route: 048
     Dates: start: 20080728, end: 20090113
  6. ATROPINE SULFATE [Concomitant]
     Route: 058
     Dates: start: 20080728, end: 20090113

REACTIONS (1)
  - SKIN ULCER [None]
